FAERS Safety Report 7867045-0 (Version None)
Quarter: 2011Q4

REPORT INFORMATION
  Report Type: 
  Country: None (occurrence: None)
  Receive Date: 20111028
  Receipt Date: 20111020
  Transmission Date: 20120403
  Serious: Yes (Hospitalization)
  Sender: FDA-Public Use
  Company Number: US-ABBOTT-11P-163-0866720-00

PATIENT
  Sex: Male

DRUGS (1)
  1. RITONAVIR [Suspect]
     Indication: MATERNAL EXPOSURE DURING PREGNANCY
     Route: 064

REACTIONS (2)
  - FOETAL GROWTH RESTRICTION [None]
  - PREMATURE BABY [None]
